FAERS Safety Report 23693251 (Version 1)
Quarter: 2024Q2

REPORT INFORMATION
  Report Type: Spontaneous
  Country: GB (occurrence: GB)
  Receive Date: 20240401
  Receipt Date: 20240401
  Transmission Date: 20240716
  Serious: Yes (Death)
  Sender: FDA-Public Use
  Company Number: GB-NOVITIUMPHARMA-2024GBNVP00350

PATIENT
  Sex: Male

DRUGS (9)
  1. DEXAMETHASONE [Suspect]
     Active Substance: DEXAMETHASONE
     Indication: Chronic lymphocytic leukaemia
  2. DEXAMETHASONE [Suspect]
     Active Substance: DEXAMETHASONE
  3. RITUXIMAB [Concomitant]
     Active Substance: RITUXIMAB
     Indication: Chronic lymphocytic leukaemia
  4. RITUXIMAB [Concomitant]
     Active Substance: RITUXIMAB
     Indication: Paraneoplastic syndrome
  5. CYCLOPHOSPHAMIDE [Concomitant]
     Active Substance: CYCLOPHOSPHAMIDE
     Indication: Chronic lymphocytic leukaemia
  6. CYCLOPHOSPHAMIDE [Concomitant]
     Active Substance: CYCLOPHOSPHAMIDE
  7. BENDAMUSTINE [Concomitant]
     Active Substance: BENDAMUSTINE
     Indication: Paraneoplastic syndrome
  8. BENDAMUSTINE [Concomitant]
     Active Substance: BENDAMUSTINE
  9. IBRUTINIB [Concomitant]
     Active Substance: IBRUTINIB
     Indication: Paraneoplastic syndrome

REACTIONS (1)
  - Drug ineffective [Fatal]
